FAERS Safety Report 10516164 (Version 1)
Quarter: 2014Q3

REPORT INFORMATION
  Report Type: Spontaneous
  Country: US (occurrence: None)
  Receive Date: 20140926
  Receipt Date: 20140926
  Transmission Date: 20150326
  Serious: No
  Sender: FDA-Public Use
  Company Number: 1000069641

PATIENT
  Age: 65 Year
  Sex: Male

DRUGS (9)
  1. FIBERCON (POLYCARBOPHIL CALCIUM) [Concomitant]
  2. BABY ASPIRIN (ACETYLSALCYLIC ACID) (81 MILLIGRAM) [Concomitant]
  3. ALPRAZOLAM (ALPRAZOLAM) [Concomitant]
     Active Substance: ALPRAZOLAM
  4. LINZESS [Suspect]
     Active Substance: LINACLOTIDE
     Indication: IRRITABLE BOWEL SYNDROME
     Route: 048
     Dates: start: 201407, end: 201407
  5. COREG [Concomitant]
     Active Substance: CARVEDILOL
  6. WELLBUTRIN (BUPROPION HYDRICHLORIDE) (BUPROPION HYDROCHLORIDE) [Concomitant]
  7. LISINOPRIL (LISINOPRIL) (LISINOPRIL) [Concomitant]
     Active Substance: LISINOPRIL
  8. FISH OIL (FISH OIL) [Concomitant]
     Active Substance: FISH OIL
  9. ZYRTEC [Concomitant]
     Active Substance: CETIRIZINE HYDROCHLORIDE

REACTIONS (1)
  - Diarrhoea [None]

NARRATIVE: CASE EVENT DATE: 201407
